FAERS Safety Report 6827251-0 (Version None)
Quarter: 2010Q3

REPORT INFORMATION
  Report Type: 
  Country: None (occurrence: None)
  Receive Date: 20100709
  Receipt Date: 20100628
  Transmission Date: 20110219
  Serious: Yes (Other)
  Sender: FDA-Public Use
  Company Number: US-PFIZER INC-2010080817

PATIENT
  Sex: Female
  Weight: 63.492 kg

DRUGS (10)
  1. XALATAN [Suspect]
     Indication: GLAUCOMA
     Dosage: 1 GTT, 1X/DAY
     Route: 047
     Dates: start: 20060701
  2. XALEASE [Suspect]
  3. CALCIUM [Concomitant]
     Indication: BONE DISORDER
     Dosage: 600 MG, 3X/DAY
     Route: 048
  4. THIAMINE [Concomitant]
     Dosage: 100 MG, 1X/DAY
     Route: 048
  5. HYDROCHLOROTHIAZIDE [Concomitant]
     Indication: BLOOD PRESSURE INCREASED
     Dosage: 25 MG, 1X/DAY
     Route: 048
  6. POTASSIUM CHLORIDE [Concomitant]
     Dosage: 10 MEQ, 1X/DAY
     Route: 048
  7. FOLIC ACID [Concomitant]
     Dosage: 1 MG, 1X/DAY
     Route: 048
  8. PLAVIX [Concomitant]
     Dosage: 75 MG, 1X/DAY
     Route: 048
  9. NIFEDIPINE [Concomitant]
     Dosage: 50 MG, 1X/DAY
     Route: 048
  10. SIMVASTATIN [Concomitant]
     Dosage: 40 MG, 1X/DAY
     Route: 048

REACTIONS (2)
  - CHOLELITHOTOMY [None]
  - DEVICE MISUSE [None]
